FAERS Safety Report 17407997 (Version 13)
Quarter: 2024Q1

REPORT INFORMATION
  Report Type: Spontaneous
  Country: US (occurrence: US)
  Receive Date: 20200212
  Receipt Date: 20240318
  Transmission Date: 20240410
  Serious: No
  Sender: FDA-Public Use
  Company Number: US-PFIZER INC-2020060186

PATIENT
  Age: 78 Year
  Sex: Female

DRUGS (4)
  1. SOMAVERT [Suspect]
     Active Substance: PEGVISOMANT
     Indication: Acromegaly
     Dosage: 15 MG, ALTERNATE DAY [15MG EVERY OTHER DAY]
     Route: 058
     Dates: start: 2000
  2. SOMAVERT [Suspect]
     Active Substance: PEGVISOMANT
     Indication: Gigantism
     Dosage: 15 MG, DAILY [15MG 5 DAYS PER WEEK, PT TAKING DAILY]
     Route: 058
     Dates: start: 20200204
  3. SOMAVERT [Suspect]
     Active Substance: PEGVISOMANT
     Dosage: 15 MG, DAILY
     Route: 058
     Dates: start: 202003
  4. SOMAVERT [Suspect]
     Active Substance: PEGVISOMANT
     Dosage: INJECT 15 MG UNDER THE SKIN (SUBCUTANEOUS INJECTION) EVERY DAY
     Route: 058
     Dates: start: 20220119

REACTIONS (5)
  - Intentional dose omission [Unknown]
  - Product dose omission issue [Unknown]
  - Laziness [Unknown]
  - Insulin-like growth factor increased [Recovering/Resolving]
  - Off label use [Unknown]

NARRATIVE: CASE EVENT DATE: 20200101
